FAERS Safety Report 21503051 (Version 2)
Quarter: 2022Q4

REPORT INFORMATION
  Report Type: Spontaneous
  Country: HK (occurrence: HK)
  Receive Date: 20221025
  Receipt Date: 20221028
  Transmission Date: 20230113
  Serious: Yes (Hospitalization, Other)
  Sender: FDA-Public Use
  Company Number: HK-BAYER-2022A142543

PATIENT
  Age: 48 Year
  Sex: Female

DRUGS (1)
  1. YASMIN [Suspect]
     Active Substance: DROSPIRENONE\ETHINYL ESTRADIOL
     Dosage: UNK
     Dates: start: 2002, end: 20220921

REACTIONS (5)
  - Bacterial infection [None]
  - Nephrolithiasis [None]
  - Abnormal withdrawal bleeding [Not Recovered/Not Resolved]
  - Menopause [None]
  - Endometrial atrophy [Not Recovered/Not Resolved]

NARRATIVE: CASE EVENT DATE: 20220101
